FAERS Safety Report 8798099 (Version 1)
Quarter: 2012Q4

REPORT INFORMATION
  Report Type: 
  Country: FR (occurrence: FR)
  Receive Date: 20120920
  Receipt Date: 20120920
  Transmission Date: 20130627
  Serious: Yes (Hospitalization)
  Sender: FDA-Public Use
  Company Number: FR-GILEAD-2012-0061617

PATIENT
  Age: 24 Year
  Sex: Female

DRUGS (11)
  1. AMBRISENTAN [Suspect]
     Dosage: 5MG Per day
     Route: 048
     Dates: start: 20120616, end: 20120703
  2. BOSENTAN [Concomitant]
     Dosage: UNK
     Dates: end: 20120616
  3. FLOLAN [Concomitant]
     Route: 065
  4. LAMICTAL [Concomitant]
     Route: 065
  5. LASILIX                            /00032601/ [Concomitant]
     Route: 065
  6. ALDACTONE                          /00006201/ [Concomitant]
     Route: 065
  7. PREVISCAN                          /00261401/ [Concomitant]
     Route: 065
  8. REVATIO [Concomitant]
     Dosage: 20MG Three times per day
     Route: 065
  9. KEPPRA [Concomitant]
     Route: 065
  10. TRACLEER [Concomitant]
     Dates: end: 20120616
  11. ORAL CONTRACEPTION [Concomitant]
     Route: 065

REACTIONS (2)
  - Hepatocellular injury [Recovered/Resolved]
  - Vomiting [Recovered/Resolved]
